FAERS Safety Report 4434650-3 (Version None)
Quarter: 2004Q3

REPORT INFORMATION
  Report Type: 
  Country: None (occurrence: None)
  Receive Date: 20040827
  Receipt Date: 20040506
  Transmission Date: 20050211
  Serious: Yes (Other)
  Sender: FDA-Public Use
  Company Number: US-ROCHE-367089

PATIENT
  Age: 49 Year
  Sex: Male
  Weight: 73 kg

DRUGS (2)
  1. PEGASYS [Suspect]
     Route: 058
     Dates: start: 20030615, end: 20040303
  2. COPEGUS [Suspect]
     Route: 048
     Dates: start: 20030615, end: 20040303

REACTIONS (5)
  - ARTHRALGIA [None]
  - DEAFNESS [None]
  - DIABETES MELLITUS [None]
  - RHEUMATOID ARTHRITIS [None]
  - TINNITUS [None]
